FAERS Safety Report 8817085 (Version 1)
Quarter: 2012Q4

REPORT INFORMATION
  Report Type: Spontaneous
  Country: US (occurrence: None)
  Receive Date: 20121003
  Receipt Date: 20121003
  Transmission Date: 20130627
  Serious: No
  Sender: FDA-Public Use
  Company Number: None

PATIENT
  Sex: Female
  Weight: 113.4 kg

DRUGS (1)
  1. ADVAIR [Suspect]
     Indication: ASTHMA BRONCHIAL
     Dosage: 1 puff, 2 times daily
     Dates: start: 20100601, end: 20121002

REACTIONS (7)
  - Fatigue [None]
  - Weight increased [None]
  - Candidiasis [None]
  - Anxiety [None]
  - Muscle spasms [None]
  - Oropharyngeal pain [None]
  - Reflux laryngitis [None]
